FAERS Safety Report 18056700 (Version 1)
Quarter: 2020Q3

REPORT INFORMATION
  Report Type: Spontaneous
  Country: CA (occurrence: CA)
  Receive Date: 20200722
  Receipt Date: 20200722
  Transmission Date: 20201103
  Serious: Yes (Other)
  Sender: FDA-Public Use
  Company Number: CA-TEVA-2020-CA-1802758

PATIENT
  Age: 66 Year
  Sex: Female

DRUGS (1)
  1. ACYCLOVIR. [Suspect]
     Active Substance: ACYCLOVIR
     Indication: HERPES ZOSTER

REACTIONS (3)
  - Tenderness [Recovering/Resolving]
  - Swelling [Recovering/Resolving]
  - Erythema [Recovering/Resolving]
